FAERS Safety Report 7464723-2 (Version None)
Quarter: 2011Q2

REPORT INFORMATION
  Report Type: 
  Country: None (occurrence: None)
  Receive Date: 20110509
  Receipt Date: 20110426
  Transmission Date: 20111010
  Serious: Yes (Other)
  Sender: FDA-Public Use
  Company Number: US-ELI_LILLY_AND_COMPANY-US201006003426

PATIENT
  Sex: Female

DRUGS (7)
  1. FORTEO [Suspect]
     Indication: OSTEOPOROSIS
     Dosage: 20 UG, DAILY (1/D)
     Dates: start: 20100610
  2. SYNTHROID [Concomitant]
  3. FORTEO [Suspect]
     Dosage: 20 UG, DAILY (1/D)
  4. FORTEO [Suspect]
     Dosage: 20 UG, DAILY (1/D)
  5. FORTEO [Suspect]
     Dosage: 20 UG, QD
  6. VITAMIN B-12 [Concomitant]
  7. POTASSIUM [Concomitant]

REACTIONS (17)
  - NASOPHARYNGITIS [None]
  - HEADACHE [None]
  - BALANCE DISORDER [None]
  - MUSCULOSKELETAL STIFFNESS [None]
  - DEHYDRATION [None]
  - FALL [None]
  - CONTUSION [None]
  - AXILLARY PAIN [None]
  - NEPHROLITHIASIS [None]
  - CYSTITIS [None]
  - INJECTION SITE PAIN [None]
  - PETIT MAL EPILEPSY [None]
  - PAIN [None]
  - MUSCULOSKELETAL PAIN [None]
  - HEAD INJURY [None]
  - PAIN IN EXTREMITY [None]
  - ARTHRALGIA [None]
